FAERS Safety Report 26068151 (Version 1)
Quarter: 2025Q4

REPORT INFORMATION
  Report Type: Spontaneous
  Country: US (occurrence: US)
  Receive Date: 20251120
  Receipt Date: 20251120
  Transmission Date: 20260118
  Serious: No
  Sender: ALVOGEN
  Company Number: US-ALVOGEN-2025098658

PATIENT
  Sex: Female

DRUGS (4)
  1. TERIPARATIDE [Suspect]
     Active Substance: TERIPARATIDE
     Indication: Osteoporosis
     Dosage: EXPIRATION DATE: NOV-2026, TOOK FOR A TOTAL OF 30 OR 32 DAYS
     Dates: start: 20250227, end: 2025
  2. PHENOBARBITAL [Concomitant]
     Active Substance: PHENOBARBITAL
     Indication: Epilepsy
     Dosage: 60 MG, 2 TIMES DAILY, SINCE 40 YEARS
  3. PREGABALIN [Concomitant]
     Active Substance: PREGABALIN
     Indication: Neuropathy peripheral
     Dosage: AS 50 MG ONCE IN THE EVENING
  4. VITAMINS [Concomitant]
     Active Substance: VITAMINS
     Indication: Product used for unknown indication

REACTIONS (8)
  - Gait disturbance [Recovering/Resolving]
  - Aphonia [Recovered/Resolved]
  - Impaired quality of life [Recovering/Resolving]
  - Blood albumin decreased [Unknown]
  - Feeling abnormal [Recovering/Resolving]
  - Dizziness [Recovered/Resolved]
  - Nausea [Recovered/Resolved]
  - Inappropriate schedule of product administration [Unknown]

NARRATIVE: CASE EVENT DATE: 20250227
